FAERS Safety Report 23498205 (Version 1)
Quarter: 2024Q1

REPORT INFORMATION
  Report Type: Spontaneous
  Country: JP (occurrence: JP)
  Receive Date: 20240207
  Receipt Date: 20240207
  Transmission Date: 20240410
  Serious: Yes (Other)
  Sender: FDA-Public Use
  Company Number: JP-JNJFOC-20240218477

PATIENT
  Age: 6 Decade
  Sex: Male

DRUGS (3)
  1. UPTRAVI [Suspect]
     Active Substance: SELEXIPAG
     Indication: Pulmonary arterial hypertension
     Dosage: 1.6 MG/24 HOURS
     Route: 048
     Dates: start: 20230906, end: 2023
  2. UPTRAVI [Suspect]
     Active Substance: SELEXIPAG
     Dosage: 3.2 MG/24 HOURS
     Route: 048
     Dates: start: 2023, end: 202312
  3. UPTRAVI [Suspect]
     Active Substance: SELEXIPAG
     Dosage: 1.6 MG/24 HOURS
     Route: 048
     Dates: start: 202312

REACTIONS (1)
  - Hypoxia [Recovered/Resolved]

NARRATIVE: CASE EVENT DATE: 20231225
